FAERS Safety Report 6576184-6 (Version None)
Quarter: 2010Q1

REPORT INFORMATION
  Report Type: 
  Country: None (occurrence: None)
  Receive Date: 20100209
  Receipt Date: 20100204
  Transmission Date: 20100710
  Serious: Yes (Hospitalization, Disabling, Other)
  Sender: FDA-Public Use
  Company Number: US-MERCK-0812USA01550

PATIENT
  Age: 51 Year
  Sex: Female
  Weight: 77 kg

DRUGS (1)
  1. FOSAMAX [Suspect]
     Indication: OSTEOPENIA
     Route: 048
     Dates: start: 20040801, end: 20060401

REACTIONS (70)
  - ABDOMINAL PAIN [None]
  - ABSCESS [None]
  - ABSCESS JAW [None]
  - ACUTE SINUSITIS [None]
  - ADVERSE DRUG REACTION [None]
  - ALCOHOL USE [None]
  - ANOSMIA [None]
  - ANXIETY [None]
  - APICAL GRANULOMA [None]
  - ARTHRITIS [None]
  - BONE DENSITY DECREASED [None]
  - BONE DISORDER [None]
  - BRONCHITIS [None]
  - CANDIDIASIS [None]
  - CEREBRAL DISORDER [None]
  - CEREBRAL ISCHAEMIA [None]
  - CHONDROCALCINOSIS [None]
  - DENTAL CARIES [None]
  - DEPRESSION [None]
  - DIARRHOEA [None]
  - DRUG EFFECT DECREASED [None]
  - DYSPHONIA [None]
  - EDENTULOUS [None]
  - FATIGUE [None]
  - GASTROENTERITIS [None]
  - GASTROOESOPHAGEAL REFLUX DISEASE [None]
  - GINGIVAL BLEEDING [None]
  - GOITRE [None]
  - HAEMORRHAGE [None]
  - HEADACHE [None]
  - IMPAIRED HEALING [None]
  - INFECTION [None]
  - INSOMNIA [None]
  - LARYNGEAL DISORDER [None]
  - LARYNGITIS [None]
  - LYME DISEASE [None]
  - MENINGEAL DISORDER [None]
  - MENINGITIS BACTERIAL [None]
  - MIGRAINE [None]
  - MULTIPLE INJURIES [None]
  - MULTIPLE SCLEROSIS [None]
  - MUSCLE SPASMS [None]
  - NASAL SEPTUM PERFORATION [None]
  - NEPHROLITHIASIS [None]
  - NO THERAPEUTIC RESPONSE [None]
  - NUCLEAR MAGNETIC RESONANCE IMAGING BRAIN ABNORMAL [None]
  - ORAL INFECTION [None]
  - OROPHARYNGEAL CANDIDIASIS [None]
  - OROPHARYNGEAL PAIN [None]
  - OSTEITIS [None]
  - OSTEOARTHRITIS [None]
  - OSTEOMYELITIS [None]
  - OSTEONECROSIS [None]
  - OSTEOPENIA [None]
  - PAIN [None]
  - PAIN IN JAW [None]
  - PELVIC FRACTURE [None]
  - PLEOCYTOSIS [None]
  - PROCEDURAL SITE REACTION [None]
  - RESPIRATORY DISTRESS [None]
  - SEPSIS [None]
  - TEMPOROMANDIBULAR JOINT SYNDROME [None]
  - THYROID NEOPLASM [None]
  - TOBACCO USER [None]
  - TOOTH ABSCESS [None]
  - TOOTH DISORDER [None]
  - TOOTH INFECTION [None]
  - TOOTHACHE [None]
  - VOMITING [None]
  - WEIGHT INCREASED [None]
